FAERS Safety Report 10156200 (Version 3)
Quarter: 2014Q2

REPORT INFORMATION
  Report Type: Report from Study
  Country: US (occurrence: US)
  Receive Date: 20140506
  Receipt Date: 20140604
  Transmission Date: 20141212
  Serious: Yes (Hospitalization)
  Sender: FDA-Public Use
  Company Number: US-009507513-1404USA005973

PATIENT
  Age: 58 Year
  Sex: Female
  Weight: 66.22 kg

DRUGS (24)
  1. MK-7965 [Suspect]
     Indication: CHRONIC LYMPHOCYTIC LEUKAEMIA REFRACTORY
     Dosage: DAY 2 CYCLE 2: 7 MG/M2, OVER 2 HOURS
     Route: 042
     Dates: start: 20140325, end: 20140325
  2. MK-7965 [Suspect]
     Indication: CHRONIC LYMPHOCYTIC LEUKAEMIA RECURRENT
     Dosage: DAY 8 CYCLE 2: 10 MG/M2, OVER 2 HOURS
     Route: 042
     Dates: start: 20140331, end: 20140331
  3. MK-7965 [Suspect]
     Dosage: DAY 15 CYCLE 2: 14 MG/M2 OVER 2 HOURS
     Route: 042
     Dates: start: 20140407, end: 20140407
  4. OFATUMUMAB [Suspect]
     Indication: CHRONIC LYMPHOCYTIC LEUKAEMIA REFRACTORY
     Dosage: DAY 1, CYCLE 1:  300 MG
     Route: 042
     Dates: start: 20140224, end: 20140224
  5. OFATUMUMAB [Suspect]
     Indication: CHRONIC LYMPHOCYTIC LEUKAEMIA RECURRENT
     Dosage: DAYS 8,15, 22, CYCLE  1: 2000 MG
     Route: 042
     Dates: start: 20140303, end: 20140317
  6. OFATUMUMAB [Suspect]
     Dosage: DAYS 1, 8, 15: 2000 MG CYCLE 2
     Route: 042
     Dates: start: 20140324, end: 20140407
  7. AFRIN [Suspect]
     Indication: EPISTAXIS
     Dosage: UNK
     Route: 045
     Dates: start: 201404
  8. FLOSEAL [Concomitant]
     Dosage: UNK
     Route: 045
  9. SURGIFOAM [Concomitant]
     Dosage: UNK
     Route: 045
  10. OXYCODONE [Concomitant]
     Dosage: UNK
  11. ACYCLOVIR [Concomitant]
     Dosage: UNK
  12. SULFAMETHOXAZOLE (+) TRIMETHOPRIM [Concomitant]
     Dosage: UNK
  13. ACETAMINOPHEN [Concomitant]
     Dosage: UNK
  14. ONDANSETRON HYDROCHLORIDE [Concomitant]
     Dosage: UNK
  15. DOCUSATE SODIUM [Concomitant]
     Dosage: UNK
  16. SENNA [Concomitant]
     Dosage: UNK
  17. LORAZEPAM [Concomitant]
     Dosage: UNK
  18. DIPHENHYDRAMINE HYDROCHLORIDE [Concomitant]
     Dosage: UNK
  19. CETIRIZINE HYDROCHLORIDE [Concomitant]
     Dosage: UNK
  20. LANSOPRAZOLE [Concomitant]
     Dosage: UNK
  21. PREDNISONE [Concomitant]
     Dosage: UNK
  22. POLYETHYLENE GLYCOL [Concomitant]
     Dosage: UNK
  23. LIDOCAINE [Concomitant]
     Dosage: PATCH
  24. CLOBETASOL PROPIONATE [Concomitant]
     Route: 061

REACTIONS (1)
  - Supraventricular tachycardia [Recovering/Resolving]
